FAERS Safety Report 12899787 (Version 1)
Quarter: 2016Q4

REPORT INFORMATION
  Report Type: Spontaneous
  Country: US (occurrence: US)
  Receive Date: 20161031
  Receipt Date: 20161031
  Transmission Date: 20170207
  Serious: Yes (Hospitalization, Disabling)
  Sender: FDA-Public Use
  Company Number: None

PATIENT
  Age: 38 Year
  Sex: Female
  Weight: 148.5 kg

DRUGS (5)
  1. BUSPIRONE [Concomitant]
     Active Substance: BUSPIRONE HYDROCHLORIDE
  2. LEVAQUIN [Suspect]
     Active Substance: LEVOFLOXACIN
     Indication: OSTEOMYELITIS
     Route: 042
     Dates: start: 20160729, end: 20160908
  3. HUMULIN NOS [Concomitant]
     Active Substance: INSULIN HUMAN
  4. SPIROLACTIN [Concomitant]
  5. METFORMIN [Concomitant]
     Active Substance: METFORMIN HYDROCHLORIDE

REACTIONS (5)
  - Tendonitis [None]
  - Gait disturbance [None]
  - Arthralgia [None]
  - Myalgia [None]
  - Heart rate increased [None]

NARRATIVE: CASE EVENT DATE: 20160801
